FAERS Safety Report 4797451-2 (Version None)
Quarter: 2005Q4

REPORT INFORMATION
  Report Type: 
  Country: None (occurrence: None)
  Receive Date: 20051006
  Receipt Date: 20051006
  Transmission Date: 20060501
  Serious: Yes (Hospitalization)
  Sender: FDA-Public Use
  Company Number: None

PATIENT
  Age: 66 Year
  Sex: Male

DRUGS (9)
  1. VANCOMYCIN [Suspect]
     Indication: ENDOCARDITIS
     Dosage: 750 MG IV Q 24 HOURS
     Route: 042
     Dates: start: 20040922, end: 20041130
  2. LEVETIRACETAM [Suspect]
     Indication: CONVULSION PROPHYLAXIS
     Dosage: 500 MG PO Q 12 HOURS
     Route: 048
  3. AZTREONAM [Concomitant]
  4. LEVETIRACETAM [Concomitant]
  5. FESO4 [Concomitant]
  6. AMIODARONE [Concomitant]
  7. COUMADIN [Concomitant]
  8. ZOLOFT [Concomitant]
  9. TRAZODONE HCL [Concomitant]

REACTIONS (3)
  - INTERNATIONAL NORMALISED RATIO INCREASED [None]
  - LEUKOPENIA [None]
  - RENAL FAILURE ACUTE [None]
